FAERS Safety Report 7088436-4 (Version None)
Quarter: 2010Q4

REPORT INFORMATION
  Report Type: 
  Country: None (occurrence: None)
  Receive Date: 20101029
  Receipt Date: 20101022
  Transmission Date: 20110411
  Serious: Yes (Hospitalization)
  Sender: FDA-Public Use
  Company Number: DSA_44172_2010

PATIENT
  Sex: Male

DRUGS (5)
  1. XENAZINE [Suspect]
     Indication: HUNTINGTON'S DISEASE
     Dosage: (12.5 MG BID ORAL)
     Route: 048
     Dates: start: 20100506, end: 20100101
  2. LORAZEPAM [Concomitant]
  3. FLEXERIL [Concomitant]
  4. ZANAFLEX [Concomitant]
  5. PERCOCET [Concomitant]

REACTIONS (1)
  - PARALYSIS [None]
